FAERS Safety Report 6636000-0 (Version None)
Quarter: 2010Q1

REPORT INFORMATION
  Report Type: 
  Country: None (occurrence: None)
  Receive Date: 20100316
  Receipt Date: 20100310
  Transmission Date: 20100710
  Serious: Yes (Hospitalization)
  Sender: FDA-Public Use
  Company Number: US-RB-001169-10

PATIENT
  Age: 60 Year
  Sex: Female

DRUGS (7)
  1. SUBOXONE [Suspect]
     Route: 060
     Dates: start: 20070101
  2. AMBIEN [Concomitant]
     Indication: INSOMNIA
     Dosage: DOSING INFORMATION UNKNOWN
     Route: 065
  3. WELLBUTRIN [Concomitant]
     Indication: DEPRESSION
     Route: 065
  4. CYMBALTA [Concomitant]
     Indication: DEPRESSION
     Dosage: DOSING INFORMATION UNKNOWN
     Route: 065
  5. LAMICTAL CD [Concomitant]
     Indication: DEPRESSION
     Dosage: DOSING INFORMATION UNKNOWN
     Route: 065
  6. TRAZODONE HCL [Concomitant]
     Indication: INSOMNIA
     Dosage: DOSING INFORMATION UNKNOWN
     Route: 065
  7. TRAZODONE HCL [Concomitant]
     Indication: DEPRESSION
     Dosage: DOSING INFORMATION UNKNOWN
     Route: 065

REACTIONS (6)
  - ARTHRALGIA [None]
  - DEPRESSION [None]
  - DYSPHONIA [None]
  - LIVER DISORDER [None]
  - MENTAL DISORDER [None]
  - SUICIDE ATTEMPT [None]
